FAERS Safety Report 16442829 (Version 1)
Quarter: 2019Q2

REPORT INFORMATION
  Report Type: Spontaneous
  Country: FR (occurrence: FR)
  Receive Date: 20190617
  Receipt Date: 20190617
  Transmission Date: 20190711
  Serious: Yes (Life-Threatening)
  Sender: FDA-Public Use
  Company Number: FR-EXELIXIS-CABO-19021865

PATIENT
  Age: 79 Year
  Sex: Female
  Weight: 65 kg

DRUGS (1)
  1. CABOMETYX [Suspect]
     Active Substance: CABOZANTINIB S-MALATE
     Indication: RENAL CANCER STAGE IV
     Dosage: 60 MG, QD
     Route: 048
     Dates: start: 20180515, end: 20190412

REACTIONS (4)
  - Diarrhoea [Recovered/Resolved]
  - Skin ulcer [Recovering/Resolving]
  - Metabolic acidosis [Recovered/Resolved]
  - Impaired healing [Recovering/Resolving]

NARRATIVE: CASE EVENT DATE: 201904
